FAERS Safety Report 6814850-5 (Version None)
Quarter: 2010Q3

REPORT INFORMATION
  Report Type: 
  Country: None (occurrence: None)
  Receive Date: 20100702
  Receipt Date: 20100622
  Transmission Date: 20110219
  Serious: Yes (Hospitalization)
  Sender: FDA-Public Use
  Company Number: B0661772A

PATIENT
  Sex: Male

DRUGS (5)
  1. ZOPHREN [Suspect]
     Dosage: 8MG PER DAY
     Route: 042
     Dates: start: 20100430, end: 20100430
  2. ELOXATIN [Suspect]
     Indication: HODGKIN'S DISEASE
     Dosage: 100MG PER DAY
     Route: 042
     Dates: start: 20100430, end: 20100430
  3. GEMZAR [Suspect]
     Indication: HODGKIN'S DISEASE
     Dosage: 1520MG PER DAY
     Route: 042
     Dates: start: 20100430, end: 20100430
  4. METHYLPREDNISOLONE [Suspect]
     Indication: PREMEDICATION
     Dosage: 60MG PER DAY
     Route: 042
     Dates: start: 20100430, end: 20100430
  5. PLITICAN [Suspect]
     Dosage: 100MG PER DAY
     Route: 042
     Dates: start: 20100430, end: 20100430

REACTIONS (3)
  - ERYTHEMA [None]
  - FEELING HOT [None]
  - PRURITUS [None]
